FAERS Safety Report 4509121-6 (Version None)
Quarter: 2004Q4

REPORT INFORMATION
  Report Type: 
  Country: None (occurrence: None)
  Receive Date: 20041025
  Receipt Date: 20040823
  Transmission Date: 20050328
  Serious: Yes (Other)
  Sender: FDA-Public Use
  Company Number: US-JNJFOC-20040807940

PATIENT
  Age: 33 Year
  Sex: Female
  Weight: 68.9467 kg

DRUGS (4)
  1. REMICADE [Suspect]
     Indication: CROHN'S DISEASE
     Dosage: 300 MG, INTRAVENOUS
     Route: 042
     Dates: start: 20040330
  2. PENTASA [Concomitant]
  3. PREDNISONE [Concomitant]
  4. LEXAPRO [Concomitant]

REACTIONS (2)
  - INFUSION RELATED REACTION [None]
  - NEUROPATHY [None]
